FAERS Safety Report 9692527 (Version 1)
Quarter: 2013Q4

REPORT INFORMATION
  Report Type: Spontaneous
  Country: DE (occurrence: DE)
  Receive Date: 20131118
  Receipt Date: 20131118
  Transmission Date: 20140711
  Serious: Yes (Other)
  Sender: FDA-Public Use
  Company Number: DE-UCBSA-102666

PATIENT
  Age: 24 Year
  Sex: Female
  Weight: 97 kg

DRUGS (3)
  1. KEPPRA [Suspect]
     Indication: EPILEPSY
     Route: 048
  2. ERGENYL CHRONO [Suspect]
     Indication: EPILEPSY
     Route: 048
  3. FOLIC ACID [Concomitant]
     Indication: PROPHYLAXIS OF NEURAL TUBE DEFECT
     Route: 048
     Dates: start: 2008

REACTIONS (2)
  - Gestational diabetes [Unknown]
  - Pregnancy [Recovered/Resolved]
